FAERS Safety Report 25547440 (Version 1)
Quarter: 2025Q3

REPORT INFORMATION
  Report Type: Report from Study
  Country: EU (occurrence: EU)
  Receive Date: 20250714
  Receipt Date: 20250714
  Transmission Date: 20251021
  Serious: Yes (Other)
  Sender: ALK-ABELLO
  Company Number: None

PATIENT

DRUGS (3)
  1. ACARIZAX [Suspect]
     Active Substance: DERMATOPHAGOIDES FARINAE\DERMATOPHAGOIDES PTERONYSSINUS
     Indication: Mite allergy
     Dates: start: 20250702, end: 20250702
  2. FLUTICASONE PROPIONATE\SALMETEROL XINAFOATE [Suspect]
     Active Substance: FLUTICASONE PROPIONATE\SALMETEROL XINAFOATE
     Indication: Product used for unknown indication
     Dates: end: 20250702
  3. FORMISTIN [Concomitant]

REACTIONS (6)
  - Lip oedema [Recovered/Resolved]
  - Oedema mouth [Recovered/Resolved]
  - Macroglossia [Recovered/Resolved]
  - Dysphonia [Recovered/Resolved]
  - Pruritus [Unknown]
  - Erythema [Unknown]

NARRATIVE: CASE EVENT DATE: 20250703
